FAERS Safety Report 14683936 (Version 1)
Quarter: 2018Q1

REPORT INFORMATION
  Report Type: Spontaneous
  Country: GB (occurrence: GB)
  Receive Date: 20180327
  Receipt Date: 20180327
  Transmission Date: 20180509
  Serious: Yes (Other)
  Sender: FDA-Public Use
  Company Number: GB-MYLANLABS-2018M1011790

PATIENT
  Sex: Male
  Weight: 109 kg

DRUGS (1)
  1. CLOZARIL [Suspect]
     Active Substance: CLOZAPINE
     Indication: SCHIZOPHRENIA
     Dosage: UNK
     Route: 048
     Dates: start: 20180123, end: 20180208

REACTIONS (5)
  - C-reactive protein increased [Unknown]
  - Tachycardia [Unknown]
  - Ill-defined disorder [Unknown]
  - Myocarditis [Recovered/Resolved]
  - Inflammation [Unknown]

NARRATIVE: CASE EVENT DATE: 2018
